FAERS Safety Report 5213570-0 (Version None)
Quarter: 2007Q1

REPORT INFORMATION
  Report Type: 
  Country: None (occurrence: None)
  Receive Date: 20070119
  Receipt Date: 20070112
  Transmission Date: 20070707
  Serious: Yes (Hospitalization)
  Sender: FDA-Public Use
  Company Number: CZ-ABBOTT-06P-217-0352853-00

PATIENT
  Age: 60 Year
  Sex: Female
  Weight: 133 kg

DRUGS (6)
  1. MERIDIA [Suspect]
     Indication: OBESITY
     Route: 048
     Dates: start: 20060601
  2. ENELBIN RETARD [Concomitant]
     Indication: VEIN DISORDER
  3. WARFARIN SODIUM [Concomitant]
     Indication: VEIN DISORDER
  4. IBUPROFEN [Concomitant]
     Indication: BACK PAIN
  5. IBUPROFEN [Concomitant]
     Indication: ARTHRALGIA
  6. DIBENZEPIN HYDROCHLORIDE [Concomitant]
     Indication: DEPRESSION

REACTIONS (5)
  - HYPERSENSITIVITY [None]
  - PRURITUS [None]
  - RASH MACULAR [None]
  - SKIN ULCER [None]
  - WEIGHT INCREASED [None]
